FAERS Safety Report 4348621-9 (Version None)
Quarter: 2004Q2

REPORT INFORMATION
  Report Type: 
  Country: None (occurrence: None)
  Receive Date: 20040423
  Receipt Date: 20040412
  Transmission Date: 20050107
  Serious: No
  Sender: FDA-Public Use
  Company Number: USA-2004-0013914

PATIENT
  Age: 47 Year
  Sex: Male

DRUGS (5)
  1. OXYCONTIN [Suspect]
     Indication: PAIN
     Dosage: 160 MG, Q12H, ORAL
     Route: 048
     Dates: start: 20020909
  2. MORPHINE [Concomitant]
  3. CLONIDINE [Concomitant]
  4. PERCOCET-5 (OXYCODONE TEREPHTHALATE) [Concomitant]
  5. SOMA [Concomitant]

REACTIONS (7)
  - COMPRESSION FRACTURE [None]
  - DRUG TOLERANCE [None]
  - FOREARM FRACTURE [None]
  - INJURY [None]
  - MUSCLE SPASMS [None]
  - PAIN [None]
  - UPPER LIMB FRACTURE [None]
